FAERS Safety Report 23472782 (Version 4)
Quarter: 2024Q1

REPORT INFORMATION
  Report Type: Report from Study
  Country: ES (occurrence: ES)
  Receive Date: 20240202
  Receipt Date: 20240228
  Transmission Date: 20240409
  Serious: Yes (Death, Hospitalization)
  Sender: FDA-Public Use
  Company Number: ES-ABBVIE-5602260

PATIENT
  Age: 81 Year
  Sex: Male

DRUGS (2)
  1. CARBIDOPA\LEVODOPA [Suspect]
     Active Substance: CARBIDOPA\LEVODOPA
     Indication: Parkinson^s disease
     Route: 050
     Dates: start: 20191106
  2. CARBIDOPA\LEVODOPA [Suspect]
     Active Substance: CARBIDOPA\LEVODOPA

REACTIONS (13)
  - General physical health deterioration [Unknown]
  - Cachexia [Unknown]
  - Device expulsion [Unknown]
  - Off label use [Unknown]
  - Enteral nutrition [Unknown]
  - Feeding disorder [Unknown]
  - Device issue [Unknown]
  - Hyponatraemia [Unknown]
  - Stoma site ulcer [Unknown]
  - Parkinson^s disease [Unknown]
  - Hypoglycaemia [Fatal]
  - Condition aggravated [Fatal]
  - Hepatitis acute [Fatal]

NARRATIVE: CASE EVENT DATE: 20240101
